FAERS Safety Report 6383415-4 (Version None)
Quarter: 2009Q4

REPORT INFORMATION
  Report Type: 
  Country: None (occurrence: None)
  Receive Date: 20091001
  Receipt Date: 20090918
  Transmission Date: 20100525
  Serious: Yes (Other)
  Sender: FDA-Public Use
  Company Number: US-RANBAXY-2009RR-27959

PATIENT
  Age: 46 Year
  Sex: Female

DRUGS (1)
  1. MIDAZOLAM HYDROCHLORIDE [Suspect]
     Dosage: 16 MG, UNK
     Route: 048

REACTIONS (3)
  - AGITATION [None]
  - DYSKINESIA [None]
  - RESTLESSNESS [None]
